FAERS Safety Report 14304646 (Version 2)
Quarter: 2018Q1

REPORT INFORMATION
  Report Type: Spontaneous
  Country: IT (occurrence: IT)
  Receive Date: 20171219
  Receipt Date: 20180126
  Transmission Date: 20180509
  Serious: Yes (Hospitalization)
  Sender: FDA-Public Use
  Company Number: IT-OTSUKA-14859870

PATIENT
  Age: 40 Year
  Sex: Male

DRUGS (3)
  1. DIAZEPAM. [Concomitant]
     Active Substance: DIAZEPAM
     Indication: AGITATION
     Dosage: 5 MG, UNK
     Route: 065
     Dates: start: 20090123, end: 20090226
  2. ABILIFY [Suspect]
     Active Substance: ARIPIPRAZOLE
     Indication: MANIA
     Dosage: ARIPIPRAZOLE DISCONTINUED ONE WEEK (AS PLANNED, BUT NOT FOR THE REACTION);30MG.INTERRUPTED 26FEB09
     Route: 048
     Dates: start: 20090125
  3. LITHIUM CARBONATE. [Suspect]
     Active Substance: LITHIUM CARBONATE
     Indication: MANIA
     Dosage: 1200 MG, QD
     Route: 048
     Dates: start: 20090123, end: 20091123

REACTIONS (8)
  - Lipids abnormal [Recovered/Resolved with Sequelae]
  - Thyroid disorder [Unknown]
  - Dyskinesia [Recovered/Resolved with Sequelae]
  - Mania [Unknown]
  - Psoriasis [Recovered/Resolved with Sequelae]
  - Akathisia [Recovered/Resolved with Sequelae]
  - Vision blurred [Recovered/Resolved with Sequelae]
  - Nervous system disorder [Unknown]

NARRATIVE: CASE EVENT DATE: 20090315
